FAERS Safety Report 14176078 (Version 1)
Quarter: 2017Q4

REPORT INFORMATION
  Report Type: Spontaneous
  Country: BR (occurrence: BR)
  Receive Date: 20171109
  Receipt Date: 20171109
  Transmission Date: 20180321
  Serious: Yes (Other)
  Sender: FDA-Public Use
  Company Number: BR-SA-2017SA211235

PATIENT
  Sex: Female

DRUGS (1)
  1. ARAVA [Suspect]
     Active Substance: LEFLUNOMIDE
     Route: 048

REACTIONS (7)
  - Cardiovascular disorder [Unknown]
  - Mass [Unknown]
  - Condition aggravated [Unknown]
  - Abnormal behaviour [Unknown]
  - Hand deformity [Unknown]
  - Musculoskeletal pain [Unknown]
  - Drug ineffective [Unknown]
